FAERS Safety Report 4915042-7 (Version None)
Quarter: 2006Q1

REPORT INFORMATION
  Report Type: 
  Country: None (occurrence: None)
  Receive Date: 20060217
  Receipt Date: 20060120
  Transmission Date: 20060701
  Serious: Yes (Death, Hospitalization)
  Sender: FDA-Public Use
  Company Number: FR-BRISTOL-MYERS SQUIBB COMPANY-13256540

PATIENT
  Age: 84 Year
  Sex: Female

DRUGS (8)
  1. COAPROVEL TABS 300MG/12.5MG [Suspect]
     Route: 048
     Dates: end: 20051207
  2. LERCAN [Suspect]
     Indication: DEMENTIA ALZHEIMER'S TYPE
     Route: 048
     Dates: end: 20051207
  3. ARICEPT [Suspect]
     Indication: DEMENTIA ALZHEIMER'S TYPE
     Dosage: 5MG FROM 01-SEP-2005 TO 30-SEP-2005; 10MG FROM 01-OCT-2005 TO 08-DEC-2005
     Route: 048
     Dates: start: 20050901, end: 20051207
  4. ZOLOFT [Suspect]
     Indication: DEPRESSION
     Route: 048
     Dates: end: 20051207
  5. MEPRONIZINE [Suspect]
     Dosage: 410 MG TABLET
     Route: 048
     Dates: end: 20051207
  6. REPAGLINIDE [Suspect]
     Indication: DIABETES MELLITUS NON-INSULIN-DEPENDENT
     Route: 048
     Dates: end: 20051207
  7. HYPERIUM [Suspect]
     Indication: HYPERTENSION
     Route: 048
     Dates: end: 20051207
  8. TIAPRIDAL [Suspect]
     Route: 048
     Dates: end: 20051207

REACTIONS (9)
  - ALANINE AMINOTRANSFERASE INCREASED [None]
  - ASPARTATE AMINOTRANSFERASE INCREASED [None]
  - DEPRESSED LEVEL OF CONSCIOUSNESS [None]
  - HEPATITIS [None]
  - HEPATOMEGALY [None]
  - HYPERAMMONAEMIA [None]
  - PROTHROMBIN TIME SHORTENED [None]
  - RENAL FAILURE ACUTE [None]
  - RESPIRATORY DISTRESS [None]
